FAERS Safety Report 14113497 (Version 1)
Quarter: 2017Q4

REPORT INFORMATION
  Report Type: Spontaneous
  Country: US (occurrence: US)
  Receive Date: 20171022
  Receipt Date: 20171022
  Transmission Date: 20180321
  Serious: Yes (Hospitalization, Disabling)
  Sender: FDA-Public Use
  Company Number: None

PATIENT
  Age: 53 Year
  Sex: Male
  Weight: 61.65 kg

DRUGS (12)
  1. TYLENOL [Concomitant]
     Active Substance: ACETAMINOPHEN
  2. VITAMIN D [Concomitant]
     Active Substance: CHOLECALCIFEROL
  3. DEPO-TESTOSTERONE [Concomitant]
     Active Substance: TESTOSTERONE CYPIONATE
  4. MAGNESIUM [Concomitant]
     Active Substance: MAGNESIUM
  5. CALCIUM [Concomitant]
     Active Substance: CALCIUM
  6. PREDNISONE. [Concomitant]
     Active Substance: PREDNISONE
  7. SINGULAIR [Concomitant]
     Active Substance: MONTELUKAST SODIUM
  8. METAFORMIN [Concomitant]
  9. DOXEPIN [Concomitant]
     Active Substance: DOXEPIN
  10. ADVIL [Concomitant]
     Active Substance: IBUPROFEN
  11. DUPIXENT [Suspect]
     Active Substance: DUPILUMAB
     Indication: PRURITUS
     Dosage: ?          OTHER FREQUENCY:EVERY 14 DAYS;?
     Route: 030
     Dates: start: 20170508, end: 20170913
  12. LEVOTHYROXINE. [Concomitant]
     Active Substance: LEVOTHYROXINE

REACTIONS (3)
  - Arthralgia [None]
  - Myalgia [None]
  - Joint swelling [None]

NARRATIVE: CASE EVENT DATE: 20170711
